FAERS Safety Report 9371565 (Version 1)
Quarter: 2013Q2

REPORT INFORMATION
  Report Type: Spontaneous
  Country: FR (occurrence: FR)
  Receive Date: 20130627
  Receipt Date: 20130627
  Transmission Date: 20140414
  Serious: Yes (Hospitalization)
  Sender: FDA-Public Use
  Company Number: FR-ASTRAZENECA-2013SE47950

PATIENT
  Age: 28009 Day
  Sex: Female

DRUGS (2)
  1. ARIMIDEX [Suspect]
     Indication: HORMONE THERAPY
     Route: 048
     Dates: start: 20120218, end: 20130527
  2. MONO TILDIEM [Suspect]
     Indication: DEPRESSION
     Route: 065
     Dates: start: 20121231, end: 20130527

REACTIONS (4)
  - Abdominal pain upper [Recovered/Resolved]
  - Hepatitis [Recovered/Resolved]
  - Vomiting [Recovered/Resolved]
  - Asthenia [Recovered/Resolved]
